FAERS Safety Report 12299603 (Version 2)
Quarter: 2016Q3

REPORT INFORMATION
  Report Type: Spontaneous
  Country: US (occurrence: US)
  Receive Date: 20160425
  Receipt Date: 20160726
  Transmission Date: 20161109
  Serious: Yes (Hospitalization)
  Sender: FDA-Public Use
  Company Number: US-PFIZER INC-2016225511

PATIENT
  Age: 56 Year
  Sex: Female
  Weight: 91 kg

DRUGS (8)
  1. TRAMADOL. [Concomitant]
     Active Substance: TRAMADOL
     Indication: PAIN
     Dosage: 2 DF DAILY; TWO TABLETS DURING THE DAY
     Dates: start: 2015
  2. RAYOS [Concomitant]
     Active Substance: PREDNISONE
     Indication: RHEUMATOID ARTHRITIS
     Dosage: 5 DF, 1X/DAY; 5 MG, TWO TABLETS AT BED TIME
     Dates: start: 2015
  3. TRAZODONE [Concomitant]
     Active Substance: TRAZODONE HYDROCHLORIDE
     Dosage: UNK
     Dates: start: 2013
  4. METHOCARBAMOL. [Concomitant]
     Active Substance: METHOCARBAMOL
     Dosage: UNK
     Dates: start: 2013
  5. TRAMADOL ER [Concomitant]
     Active Substance: TRAMADOL HYDROCHLORIDE
     Dosage: 2 DF, 1X/DAY; 100 MG, TWO IN THE EVENING
     Dates: start: 2015
  6. XELJANZ [Suspect]
     Active Substance: TOFACITINIB CITRATE
     Indication: RHEUMATOID ARTHRITIS
     Dosage: 5 MG, 2X/DAY; ONE IN THE MORNING; ONE IN THE EVENING
     Route: 048
     Dates: start: 201606
  7. RAYOS [Concomitant]
     Active Substance: PREDNISONE
     Indication: STEROID THERAPY
  8. GABAPENTIN. [Concomitant]
     Active Substance: GABAPENTIN
     Dosage: UNK
     Dates: start: 1996

REACTIONS (5)
  - Fatigue [Not Recovered/Not Resolved]
  - Chills [Recovered/Resolved]
  - Arthropathy [Recovered/Resolved]
  - Immune system disorder [Recovered/Resolved]
  - Drug ineffective [Not Recovered/Not Resolved]

NARRATIVE: CASE EVENT DATE: 201606
